FAERS Safety Report 5476953-X (Version None)
Quarter: 2007Q4

REPORT INFORMATION
  Report Type: 
  Country: None (occurrence: None)
  Receive Date: 20071004
  Receipt Date: 20071002
  Transmission Date: 20080405
  Serious: Yes (Death)
  Sender: FDA-Public Use
  Company Number: US-ASTRAZENECA-2007UW02587

PATIENT
  Age: 4 Year
  Sex: Female

DRUGS (9)
  1. SEROQUEL [Suspect]
     Indication: BIPOLAR DISORDER
     Route: 048
  2. SEROQUEL [Suspect]
     Indication: ATTENTION DEFICIT/HYPERACTIVITY DISORDER
     Route: 048
  3. CLONIDINE [Suspect]
     Indication: AGGRESSION
  4. CLONIDINE [Suspect]
     Indication: SLEEP DISORDER
  5. VALPROIC ACID [Suspect]
  6. DEXTROMETHORPHAN HYDROBROMIDE [Suspect]
  7. CHLORTHENIRAMINE [Suspect]
  8. DEPAKOTE [Suspect]
  9. CHILDRENS' TYLENOL PLUS COUGH AND RUNNY NOSE [Suspect]

REACTIONS (9)
  - CARDIAC DISORDER [None]
  - LETHARGY [None]
  - LUNG DISORDER [None]
  - MULTIPLE DRUG OVERDOSE [None]
  - POLLAKIURIA [None]
  - SLUGGISHNESS [None]
  - SOMNOLENCE [None]
  - TREMOR [None]
  - VOMITING [None]
